FAERS Safety Report 19257860 (Version 2)
Quarter: 2021Q2

REPORT INFORMATION
  Report Type: Spontaneous
  Country: CZ (occurrence: CZ)
  Receive Date: 20210514
  Receipt Date: 20210520
  Transmission Date: 20210717
  Serious: Yes (Life-Threatening, Hospitalization, Other)
  Sender: FDA-Public Use
  Company Number: CZ-ELI_LILLY_AND_COMPANY-CZ202105005234

PATIENT
  Age: 57 Year
  Sex: Female

DRUGS (3)
  1. ATEZOLIZUMAB. [Concomitant]
     Active Substance: ATEZOLIZUMAB
     Indication: LUNG ADENOCARCINOMA STAGE IV
     Dosage: UNK, UNKNOWN
     Route: 065
     Dates: start: 202008
  2. PEMETREXED. [Suspect]
     Active Substance: PEMETREXED
     Indication: LUNG ADENOCARCINOMA STAGE IV
     Dosage: UNK, UNKNOWN
     Route: 065
     Dates: start: 202005
  3. CISPLATIN. [Suspect]
     Active Substance: CISPLATIN
     Indication: LUNG ADENOCARCINOMA STAGE IV
     Dosage: UNK, UNKNOWN
     Route: 065
     Dates: start: 202005

REACTIONS (24)
  - Pulmonary embolism [Unknown]
  - Hypokinesia [Unknown]
  - Hypoacusis [Unknown]
  - Headache [Unknown]
  - Vomiting [Unknown]
  - Haemoptysis [Unknown]
  - Visual impairment [Unknown]
  - Renal impairment [Unknown]
  - Neck pain [Unknown]
  - Subclavian vein thrombosis [Unknown]
  - Behaviour disorder [Unknown]
  - Malignant neoplasm progression [Unknown]
  - Peripheral swelling [Unknown]
  - Neurotoxicity [Unknown]
  - Posterior reversible encephalopathy syndrome [Unknown]
  - Mental disorder [Unknown]
  - Dehydration [Unknown]
  - Joint swelling [Unknown]
  - Hepatic enzyme increased [Unknown]
  - Arthralgia [Unknown]
  - Respiratory failure [Unknown]
  - Adrenomegaly [Unknown]
  - Cognitive disorder [Unknown]
  - Anaemia [Unknown]

NARRATIVE: CASE EVENT DATE: 2020
